FAERS Safety Report 7227964-5 (Version None)
Quarter: 2011Q1

REPORT INFORMATION
  Report Type: 
  Country: None (occurrence: None)
  Receive Date: 20110114
  Receipt Date: 20110110
  Transmission Date: 20110831
  Serious: Yes (Other)
  Sender: FDA-Public Use
  Company Number: DE-PFIZER INC-2011006088

PATIENT
  Age: 12 Year
  Sex: Male

DRUGS (3)
  1. DOXORUBICIN HCL [Suspect]
     Indication: BONE SARCOMA
     Dosage: UNK
  2. METHOTREXATE [Concomitant]
     Dosage: UNK
  3. CISPLATIN [Suspect]
     Indication: BONE SARCOMA
     Dosage: UNK

REACTIONS (1)
  - RENAL FAILURE ACUTE [None]
